FAERS Safety Report 7302040-1 (Version None)
Quarter: 2011Q1

REPORT INFORMATION
  Report Type: 
  Country: None (occurrence: None)
  Receive Date: 20110218
  Receipt Date: 20110216
  Transmission Date: 20110831
  Serious: Yes (Other)
  Sender: FDA-Public Use
  Company Number: JP-PFIZER INC-2011033766

PATIENT
  Age: 68 Year
  Sex: Male

DRUGS (1)
  1. AZULFIDINE [Suspect]
     Dosage: UNK
     Route: 048
     Dates: start: 20090601, end: 20090801

REACTIONS (1)
  - LIVER DISORDER [None]
